FAERS Safety Report 12044086 (Version 2)
Quarter: 2017Q1

REPORT INFORMATION
  Report Type: Spontaneous
  Country: US (occurrence: US)
  Receive Date: 20160208
  Receipt Date: 20170131
  Transmission Date: 20170428
  Serious: Yes (Other)
  Sender: FDA-Public Use
  Company Number: US-ABBVIE-15P-163-1413850-00

PATIENT
  Sex: Female

DRUGS (3)
  1. HUMIRA [Suspect]
     Active Substance: ADALIMUMAB
     Dosage: 01 MONTH
     Route: 058
  2. HUMIRA [Suspect]
     Active Substance: ADALIMUMAB
     Indication: CROHN^S DISEASE
     Route: 058
     Dates: start: 2007
  3. ENTOCORT [Concomitant]
     Active Substance: BUDESONIDE
     Indication: PRODUCT USED FOR UNKNOWN INDICATION

REACTIONS (8)
  - Intestinal obstruction [Unknown]
  - Pain [Unknown]
  - Shoulder operation [Unknown]
  - Feeling abnormal [Unknown]
  - Crohn^s disease [Unknown]
  - Fatigue [Unknown]
  - Frustration tolerance decreased [Unknown]
  - Malaise [Unknown]

NARRATIVE: CASE EVENT DATE: 201601
